FAERS Safety Report 4322066-X (Version None)
Quarter: 2004Q1

REPORT INFORMATION
  Report Type: 
  Country: None (occurrence: None)
  Receive Date: 20040323
  Receipt Date: 20031208
  Transmission Date: 20041129
  Serious: Yes (Death, Other)
  Sender: FDA-Public Use
  Company Number: HK-BRISTOL-MYERS SQUIBB COMPANY-12451514

PATIENT
  Age: 77 Year
  Sex: Male

DRUGS (3)
  1. MAXIPIME [Suspect]
     Indication: SEPSIS
     Route: 042
     Dates: start: 20031124, end: 20031126
  2. DOLOGESIC [Concomitant]
  3. CEFUROXIME [Concomitant]
     Indication: PYREXIA

REACTIONS (5)
  - COMA [None]
  - DEATH [None]
  - DELIRIUM [None]
  - ENCEPHALOPATHY [None]
  - METABOLIC ENCEPHALOPATHY [None]
